FAERS Safety Report 7580268 (Version 6)
Quarter: 2013Q1

REPORT INFORMATION
  Report Type: Spontaneous
  Country: US (occurrence: US)
  Receive Date: 20100910
  Receipt Date: 20130321
  Transmission Date: 20140127
  Serious: Yes (Life-Threatening, Hospitalization, Congenital Anomaly, Other)
  Sender: FDA-Public Use
  Company Number: US-PFIZER INC-2010109651

PATIENT
  Sex: Female
  Weight: 2.2 kg

DRUGS (26)
  1. ZOLOFT [Suspect]
     Indication: DEPRESSION
     Dosage: 150 MG, 1X/DAY
     Route: 064
  2. ZOLOFT [Suspect]
     Indication: ANXIETY
     Dosage: UNK
     Route: 064
     Dates: start: 200808, end: 200910
  3. SERTRALINE HYDROCHLORIDE [Concomitant]
     Dosage: 100 MG, UNK
     Route: 064
  4. SYNTHROID [Concomitant]
     Indication: HYPOTHYROIDISM
     Dosage: UNK
     Route: 064
  5. SYNTHROID [Concomitant]
     Dosage: 75 UG, 1X/DAY
     Route: 064
     Dates: start: 20090424
  6. ZOFRAN [Concomitant]
     Indication: NAUSEA
     Dosage: 8 MG, UNK
     Route: 064
     Dates: start: 20081022
  7. ZOFRAN [Concomitant]
     Dosage: 4 MG, 4X/DAY
     Route: 064
     Dates: start: 20090129
  8. PROMETRIUM [Concomitant]
     Dosage: 200 MG, UNK
     Route: 064
  9. PRENATAL VITAMINS [Concomitant]
     Dosage: UNK
     Route: 064
  10. FENTANYL [Concomitant]
     Dosage: 50 UG, UNK
     Route: 064
     Dates: start: 20090129
  11. MORPHINE [Concomitant]
     Indication: PAIN
     Dosage: 10 MG, UNK
     Route: 064
     Dates: start: 20090129
  12. PHENERGAN [Concomitant]
     Indication: NAUSEA
     Dosage: 25 MG, UNK
     Route: 064
     Dates: start: 20090129
  13. PHENERGAN [Concomitant]
     Dosage: 6.25 MG, 4X/DAY
     Route: 064
     Dates: start: 20090130
  14. VICODIN [Concomitant]
     Indication: PAIN
     Dosage: 1-2 TABLETS, EVERY 4 HRS
     Route: 064
     Dates: start: 20090130
  15. MAALOX [Concomitant]
     Indication: FLATULENCE
     Dosage: 30 ML, 1X/DAY
     Route: 064
     Dates: start: 20090131
  16. TERBUTALINE [Concomitant]
     Dosage: 0.25 UG, UNK
     Route: 064
     Dates: start: 20090408
  17. TERBUTALINE [Concomitant]
     Dosage: 5 MG, UNK
     Route: 064
     Dates: start: 20090424
  18. PEPCID [Concomitant]
     Indication: DYSPEPSIA
     Dosage: 20 MG, UNK
     Route: 064
     Dates: start: 20090422
  19. BETAMETHASONE [Concomitant]
     Dosage: 12.5 MG, UNK
     Route: 064
     Dates: start: 20090422
  20. PROCARDIA [Concomitant]
     Dosage: 10 MG, EVERY 4 HRS
     Route: 064
     Dates: start: 20090422
  21. TYLENOL [Concomitant]
     Indication: HEADACHE
     Dosage: 650 MG, AS NEEDED
     Route: 064
     Dates: start: 20090422
  22. VISTARIL [Concomitant]
     Dosage: 50 MG, UNK
     Route: 064
     Dates: start: 20090424
  23. DOCUSATE [Concomitant]
     Dosage: 100 MG, 2X/DAY
     Route: 064
     Dates: start: 20090424
  24. REGLAN [Concomitant]
     Indication: NAUSEA
     Dosage: 10 MG, 4X/DAY
     Route: 064
     Dates: start: 20090424
  25. REGLAN [Concomitant]
     Indication: VOMITING
  26. AMBIEN [Concomitant]
     Indication: INSOMNIA
     Dosage: 5 MG, 1X/DAY (EVERY NIGHT)
     Route: 064
     Dates: start: 20090424

REACTIONS (7)
  - Foetal exposure during pregnancy [Unknown]
  - Congenital anomaly [Unknown]
  - Coarctation of the aorta [Unknown]
  - Atrial septal defect [Unknown]
  - Jaundice [Unknown]
  - Vesicoureteric reflux [Unknown]
  - Premature baby [Unknown]
